FAERS Safety Report 12950939 (Version 1)
Quarter: 2016Q4

REPORT INFORMATION
  Report Type: Spontaneous
  Country: GB (occurrence: GB)
  Receive Date: 20161117
  Receipt Date: 20161117
  Transmission Date: 20170207
  Serious: Yes (Other)
  Sender: FDA-Public Use
  Company Number: GB-JNJFOC-20160724811

PATIENT
  Sex: Female

DRUGS (1)
  1. INFLIXIMAB, RECOMBINANT [Suspect]
     Active Substance: INFLIXIMAB
     Indication: NEUROSARCOIDOSIS
     Dosage: A STANDARD REGIME WAS EMPLOYED ANDADMINISTERED AT WEEKS 0, 2 AND 6. FURTHER DOSES AT 8 WEEKLY
     Route: 042

REACTIONS (5)
  - Drug hypersensitivity [Unknown]
  - Neuralgia [Recovering/Resolving]
  - Off label use [Unknown]
  - Systemic lupus erythematosus [Recovered/Resolved]
  - Product use issue [Unknown]
